FAERS Safety Report 10792546 (Version 1)
Quarter: 2015Q1

REPORT INFORMATION
  Report Type: Spontaneous
  Country: DK (occurrence: FR)
  Receive Date: 20150213
  Receipt Date: 20150213
  Transmission Date: 20150721
  Serious: Yes (Hospitalization)
  Sender: FDA-Public Use
  Company Number: FR-FRI-1000074388

PATIENT
  Age: 36 Year
  Sex: Female

DRUGS (6)
  1. ESCITALOPRAM [Suspect]
     Active Substance: ESCITALOPRAM OXALATE
     Indication: PRODUCT USED FOR UNKNOWN INDICATION
     Dosage: 600 MG (OVERDOSE)
     Route: 048
     Dates: start: 20150101, end: 20150101
  2. VALIUM [Suspect]
     Active Substance: DIAZEPAM
     Indication: PRODUCT USED FOR UNKNOWN INDICATION
     Dosage: NOT SPECIFIED
  3. SERESTA [Concomitant]
     Active Substance: OXAZEPAM
     Indication: PRODUCT USED FOR UNKNOWN INDICATION
     Dosage: NOT SPECIFIED
  4. VALIUM [Suspect]
     Active Substance: DIAZEPAM
     Dosage: 30 TABLET
     Dates: start: 20150101, end: 20150101
  5. THERALITHE LP [Suspect]
     Active Substance: LITHIUM CARBONATE
     Indication: PRODUCT USED FOR UNKNOWN INDICATION
     Dosage: 3 DF
     Route: 048
  6. THERALITHE LP [Suspect]
     Active Substance: LITHIUM CARBONATE
     Dosage: OVERDOSE OF 2 BOXES
     Route: 048
     Dates: start: 20150101, end: 20150101

REACTIONS (3)
  - Tremor [Recovered/Resolved]
  - Pyramidal tract syndrome [Recovered/Resolved]
  - Overdose [Recovered/Resolved]

NARRATIVE: CASE EVENT DATE: 20150101
